FAERS Safety Report 11388289 (Version 6)
Quarter: 2015Q4

REPORT INFORMATION
  Report Type: Report from Study
  Country: DE (occurrence: DE)
  Receive Date: 20150817
  Receipt Date: 20151026
  Transmission Date: 20160304
  Serious: Yes (Hospitalization)
  Sender: FDA-Public Use
  Company Number: PHHO2015DE002086

PATIENT
  Age: 48 Year
  Sex: Male

DRUGS (9)
  1. SIMULECT [Suspect]
     Active Substance: BASILIXIMAB
     Dosage: 20 MG, ONCE/SINGLE
     Route: 042
     Dates: start: 20141120, end: 20141120
  2. TACROLIMUS. [Suspect]
     Active Substance: TACROLIMUS
     Indication: RENAL TRANSPLANT
     Route: 065
     Dates: start: 20141117, end: 20150813
  3. COTRIMOXAZOL [Suspect]
     Active Substance: SULFAMETHOXAZOLE\TRIMETHOPRIM
     Indication: INFECTION PROPHYLAXIS
     Route: 065
     Dates: end: 20150205
  4. SIMULECT [Suspect]
     Active Substance: BASILIXIMAB
     Indication: RENAL TRANSPLANT
     Dosage: 20 MG, ONCE/SINGLE
     Route: 042
     Dates: start: 20141117, end: 20141117
  5. DIFLUCAN [Suspect]
     Active Substance: FLUCONAZOLE
     Indication: LEUKOPENIA
     Dosage: 100 MG, QD
     Route: 065
     Dates: start: 20150210, end: 20150220
  6. CELLCEPT [Suspect]
     Active Substance: MYCOPHENOLATE MOFETIL\MYCOPHENOLATE MOFETIL HYDROCHLORIDE
     Indication: RENAL TRANSPLANT
     Route: 065
     Dates: start: 20141117, end: 20150205
  7. VANCOMYCIN [Suspect]
     Active Substance: VANCOMYCIN
     Indication: INFECTION
     Dosage: 1 G, QD
     Route: 042
     Dates: start: 20150722, end: 20150804
  8. DIFLUCAN [Suspect]
     Active Substance: FLUCONAZOLE
     Indication: INFECTION
  9. VALCYTE [Suspect]
     Active Substance: VALGANCICLOVIR HYDROCHLORIDE
     Indication: INFECTION PROPHYLAXIS
     Route: 065
     Dates: end: 20150205

REACTIONS (6)
  - Polyomavirus-associated nephropathy [Not Recovered/Not Resolved]
  - Leukopenia [Recovered/Resolved]
  - Urinary tract infection [Recovered/Resolved]
  - Renal cyst infection [Recovered/Resolved]
  - Vertigo [Not Recovered/Not Resolved]
  - Infection [Recovered/Resolved]

NARRATIVE: CASE EVENT DATE: 20150122
